FAERS Safety Report 9782215 (Version 1)
Quarter: 2013Q4

REPORT INFORMATION
  Report Type: Spontaneous
  Country: CA (occurrence: CA)
  Receive Date: 20131226
  Receipt Date: 20131226
  Transmission Date: 20140711
  Serious: Yes (Death, Other)
  Sender: FDA-Public Use
  Company Number: CA-CELGENEUS-028-21880-13124117

PATIENT
  Age: 77 Year
  Sex: Male
  Weight: 85.2 kg

DRUGS (13)
  1. REVLIMID [Suspect]
     Indication: PLASMA CELL MYELOMA
     Dosage: 25 MILLIGRAM
     Route: 048
     Dates: end: 200811
  2. REVLIMID [Suspect]
     Dosage: 15 MILLIGRAM
     Route: 048
     Dates: end: 20121227
  3. DEXAMETHASONE [Suspect]
     Indication: PLASMA CELL MYELOMA
     Route: 065
     Dates: start: 20081105
  4. DEXAMETHASONE [Suspect]
     Route: 065
     Dates: start: 200904, end: 20121227
  5. RHINOCORT TURBUHALER [Concomitant]
     Indication: PRODUCT USED FOR UNKNOWN INDICATION
     Route: 065
     Dates: start: 20120921, end: 20130711
  6. GABAPENTIN [Concomitant]
     Indication: PRODUCT USED FOR UNKNOWN INDICATION
     Route: 065
     Dates: end: 20130711
  7. GABAPENTIN [Concomitant]
     Route: 065
     Dates: end: 20130711
  8. TRIMIPRAMINE [Concomitant]
     Indication: PRODUCT USED FOR UNKNOWN INDICATION
     Dosage: 50 MILLIGRAM
     Route: 065
     Dates: end: 20130711
  9. TAMSULOSIN [Concomitant]
     Indication: DRUG THERAPY
     Dosage: .4 MILLIGRAM
     Route: 065
     Dates: end: 20130711
  10. TEMAZEPAM [Concomitant]
     Indication: SLEEP DISORDER
     Dosage: 30 MILLIGRAM
     Route: 065
     Dates: end: 20130711
  11. ROSUVASTATIN [Concomitant]
     Indication: HYPERLIPIDAEMIA
     Dosage: 20 MILLIGRAM
     Route: 065
     Dates: end: 20130711
  12. OMEPRAZOLE [Concomitant]
     Indication: GASTROOESOPHAGEAL REFLUX DISEASE
     Dosage: 40 MILLIGRAM
     Route: 065
     Dates: end: 20130711
  13. DOCUSATE SODIUM [Concomitant]
     Indication: CONSTIPATION
     Dosage: 600 MILLIGRAM
     Route: 065
     Dates: end: 20130711

REACTIONS (2)
  - Myelodysplastic syndrome [Fatal]
  - Pancytopenia [Unknown]
